FAERS Safety Report 10783615 (Version 3)
Quarter: 2015Q2

REPORT INFORMATION
  Report Type: Spontaneous
  Country: US (occurrence: US)
  Receive Date: 20150210
  Receipt Date: 20150622
  Transmission Date: 20150821
  Serious: Yes (Hospitalization, Disabling, Other)
  Sender: FDA-Public Use
  Company Number: US-009507513-1107USA03703

PATIENT
  Sex: Female
  Weight: 93.42 kg

DRUGS (3)
  1. FOSAMAX [Suspect]
     Active Substance: ALENDRONATE SODIUM
     Dosage: 10 MG, QD
     Dates: start: 20020116
  2. ALENDRONATE SODIUM. [Suspect]
     Active Substance: ALENDRONATE SODIUM
     Indication: BONE DENSITY DECREASED
     Dosage: 70 MG, UNK
     Route: 048
     Dates: start: 2008, end: 2009
  3. FOSAMAX [Suspect]
     Active Substance: ALENDRONATE SODIUM
     Indication: BONE DENSITY DECREASED
     Dosage: 70 MG, QW
     Route: 048
     Dates: start: 1999, end: 20090826

REACTIONS (42)
  - Deep vein thrombosis [Unknown]
  - Diaphragmatic hernia [Unknown]
  - Open reduction of fracture [Unknown]
  - Fall [Unknown]
  - Hyponatraemia [Unknown]
  - Anxiety [Unknown]
  - Blood osmolarity decreased [Unknown]
  - Open reduction of fracture [Unknown]
  - Foot fracture [Unknown]
  - Gastrointestinal haemorrhage [Unknown]
  - Fall [Unknown]
  - Diarrhoea [Unknown]
  - Vena cava filter insertion [Unknown]
  - Neuropathy peripheral [Unknown]
  - Femur fracture [Unknown]
  - Pyrexia [Unknown]
  - Sleep apnoea syndrome [Unknown]
  - Hypertension [Unknown]
  - Neutrophil count increased [Unknown]
  - Gastrooesophageal reflux disease [Unknown]
  - Radius fracture [Unknown]
  - Open reduction of fracture [Unknown]
  - Fracture nonunion [Unknown]
  - Trigger finger [Unknown]
  - Osteoporosis [Unknown]
  - Lymphocyte count decreased [Unknown]
  - Bronchitis [Unknown]
  - Femur fracture [Unknown]
  - Joint arthroplasty [Unknown]
  - Hip arthroplasty [Unknown]
  - Atrial fibrillation [Unknown]
  - Peripheral venous disease [Unknown]
  - Urinary tract infection [Unknown]
  - Foot fracture [Unknown]
  - Intramedullary rod insertion [Unknown]
  - Medical device removal [Unknown]
  - Carpal tunnel syndrome [Unknown]
  - Muscular weakness [Unknown]
  - Eye allergy [Unknown]
  - Iron deficiency anaemia [Not Recovered/Not Resolved]
  - Blood phosphorus decreased [Unknown]
  - Intervertebral disc degeneration [Unknown]

NARRATIVE: CASE EVENT DATE: 20011227
